FAERS Safety Report 17040280 (Version 1)
Quarter: 2019Q4

REPORT INFORMATION
  Report Type: Other
  Country: HR (occurrence: HR)
  Receive Date: 20191117
  Receipt Date: 20191117
  Transmission Date: 20200122
  Serious: Yes (Other)
  Sender: FDA-Public Use
  Company Number: HR-DEXPHARM-20191002

PATIENT
  Age: 52 Year
  Sex: Female

DRUGS (2)
  1. OMEPRAZOLE. [Suspect]
     Active Substance: OMEPRAZOLE
     Indication: OCCUPATIONAL EXPOSURE TO PRODUCT
  2. AZITHROMYCIN ANHYDROUS. [Concomitant]
     Active Substance: AZITHROMYCIN ANHYDROUS
     Indication: OCCUPATIONAL EXPOSURE TO PRODUCT

REACTIONS (1)
  - Dermatitis contact [Recovered/Resolved]
